FAERS Safety Report 10182684 (Version 1)
Quarter: 2014Q2

REPORT INFORMATION
  Report Type: Spontaneous
  Country: US (occurrence: None)
  Receive Date: 20140519
  Receipt Date: 20140519
  Transmission Date: 20141212
  Serious: No
  Sender: FDA-Public Use
  Company Number: None

PATIENT
  Age: 55 Year
  Sex: Male
  Weight: 83.92 kg

DRUGS (1)
  1. XARELTO 20MG JANSSEN [Suspect]
     Indication: THROMBOSIS
     Dosage: 1 PILL EVENING, ONCE DAILY, TAKEN BY MOUTH
     Route: 048
     Dates: start: 20140301, end: 20140508

REACTIONS (5)
  - Fatigue [None]
  - Neuropathy peripheral [None]
  - Pain in extremity [None]
  - Dyspnoea [None]
  - Product substitution issue [None]
